FAERS Safety Report 4337770-7 (Version None)
Quarter: 2004Q2

REPORT INFORMATION
  Report Type: 
  Country: None (occurrence: None)
  Receive Date: 20040413
  Receipt Date: 20040402
  Transmission Date: 20050107
  Serious: Yes (Other)
  Sender: FDA-Public Use
  Company Number: PHEH2004US03832

PATIENT
  Age: 57 Year
  Sex: Male

DRUGS (6)
  1. CLOZARIL [Suspect]
     Dosage: 450 MG/DAY
     Route: 048
     Dates: start: 19990401
  2. CHEMOTHERAPEUTICS,OTHER [Suspect]
     Indication: NON-HODGKIN'S LYMPHOMA
  3. DEPAKOTE [Concomitant]
  4. ANAFRANIL [Concomitant]
  5. DILANTIN [Concomitant]
  6. PREVACID [Concomitant]

REACTIONS (5)
  - CHEMOTHERAPY [None]
  - LEUKOPENIA [None]
  - NON-HODGKIN'S LYMPHOMA [None]
  - SPLEEN DISORDER [None]
  - WHITE BLOOD CELL COUNT DECREASED [None]
